FAERS Safety Report 5762841-8 (Version None)
Quarter: 2008Q2

REPORT INFORMATION
  Report Type: 
  Country: None (occurrence: None)
  Receive Date: 20080609
  Receipt Date: 20080528
  Transmission Date: 20081010
  Serious: Yes (Hospitalization)
  Sender: FDA-Public Use
  Company Number: JP-BRISTOL-MYERS SQUIBB COMPANY-14219455

PATIENT
  Age: 64 Year
  Sex: Male

DRUGS (2)
  1. SINEMET [Suspect]
     Indication: PARKINSONISM
     Route: 048
  2. AMANTADINE HCL [Concomitant]

REACTIONS (3)
  - ILEUS [None]
  - MEGACOLON [None]
  - VOLVULUS [None]
